FAERS Safety Report 21206917 (Version 2)
Quarter: 2022Q3

REPORT INFORMATION
  Report Type: Other
  Country: JP (occurrence: JP)
  Receive Date: 20220812
  Receipt Date: 20220818
  Transmission Date: 20221026
  Serious: Yes (Other)
  Sender: FDA-Public Use
  Company Number: JP-002147023-NVSJ2022JP095580

PATIENT
  Age: 10 Month
  Sex: Male

DRUGS (1)
  1. RANIBIZUMAB [Suspect]
     Active Substance: RANIBIZUMAB
     Indication: Retinopathy of prematurity
     Dosage: UNK
     Route: 050

REACTIONS (2)
  - Retinopathy of prematurity [Recovering/Resolving]
  - Disease recurrence [Recovering/Resolving]
